FAERS Safety Report 7960891-4 (Version None)
Quarter: 2011Q4

REPORT INFORMATION
  Report Type: 
  Country: None (occurrence: None)
  Receive Date: 20111201
  Receipt Date: 20111121
  Transmission Date: 20120403
  Serious: Yes (Other)
  Sender: FDA-Public Use
  Company Number: AUR-APL-2011-05940

PATIENT
  Age: 27 Year
  Sex: Female

DRUGS (4)
  1. OXYCODONE AND ACETAMINOPHEN (OXYCOCET) [Concomitant]
  2. PREGABALIN [Concomitant]
  3. DIVALPROEX SODIUM [Suspect]
     Indication: EPILEPSY
  4. ALPRAZOLAM [Concomitant]

REACTIONS (30)
  - TENDERNESS [None]
  - HYPOPHOSPHATAEMIA [None]
  - BLOOD URIC ACID INCREASED [None]
  - PROTEIN URINE PRESENT [None]
  - VITAMIN D DECREASED [None]
  - CONFUSIONAL STATE [None]
  - SWELLING [None]
  - ERYTHEMA [None]
  - JOINT RANGE OF MOTION DECREASED [None]
  - GLYCOSURIA [None]
  - ANKLE FRACTURE [None]
  - MENTAL STATUS CHANGES [None]
  - RENAL TUBULAR DISORDER [None]
  - FALL [None]
  - PAIN IN EXTREMITY [None]
  - POLYDIPSIA [None]
  - DISORIENTATION [None]
  - ECCHYMOSIS [None]
  - HYPOKALAEMIA [None]
  - FANCONI SYNDROME [None]
  - HYPOREFLEXIA [None]
  - HYPOURICAEMIA [None]
  - OEDEMA PERIPHERAL [None]
  - HYPOCALCAEMIA [None]
  - HYPOVITAMINOSIS [None]
  - ELECTROLYTE IMBALANCE [None]
  - BEDRIDDEN [None]
  - CONVULSION [None]
  - FATIGUE [None]
  - POLYURIA [None]
